FAERS Safety Report 5963860-9 (Version None)
Quarter: 2008Q4

REPORT INFORMATION
  Report Type: 
  Country: None (occurrence: None)
  Receive Date: 20081121
  Receipt Date: 20081121
  Transmission Date: 20090506
  Serious: Yes (Life-Threatening, Hospitalization)
  Sender: FDA-Public Use
  Company Number: None

PATIENT
  Sex: Male
  Weight: 77.1115 kg

DRUGS (1)
  1. CEPHALEXIN [Suspect]
     Indication: SKIN INFECTION
     Dosage: 500 MG 3 P/DAY ORAL
     Route: 048
     Dates: start: 20081104

REACTIONS (1)
  - UNEVALUABLE EVENT [None]
